FAERS Safety Report 4790451-8 (Version None)
Quarter: 2005Q4

REPORT INFORMATION
  Report Type: 
  Country: None (occurrence: None)
  Receive Date: 20051005
  Receipt Date: 20050919
  Transmission Date: 20060501
  Serious: Yes (Other)
  Sender: FDA-Public Use
  Company Number: US_0504116208

PATIENT
  Age: 60 Year
  Sex: Male

DRUGS (3)
  1. ZYPREXA [Suspect]
     Indication: SCHIZOPHRENIA
     Dosage: UNK
     Route: 065
     Dates: start: 20010418, end: 20031001
  2. LISINOPRIL [Concomitant]
  3. LIPITOR [Concomitant]

REACTIONS (6)
  - BLOOD CHOLESTEROL INCREASED [None]
  - DIABETES MELLITUS [None]
  - GLYCOSYLATED HAEMOGLOBIN INCREASED [None]
  - LOW DENSITY LIPOPROTEIN INCREASED [None]
  - NEUROPATHY PERIPHERAL [None]
  - RECTAL HAEMORRHAGE [None]
